FAERS Safety Report 10242365 (Version 1)
Quarter: 2014Q2

REPORT INFORMATION
  Report Type: Spontaneous
  Country: FR (occurrence: FR)
  Receive Date: 20140617
  Receipt Date: 20140617
  Transmission Date: 20141212
  Serious: Yes (Hospitalization)
  Sender: FDA-Public Use
  Company Number: FR-DSJP-DSE-2014-111661

PATIENT
  Sex: 0

DRUGS (2)
  1. ALTEIS [Suspect]
     Indication: HYPERTENSION
     Route: 048
  2. IXPRIM [Suspect]
     Indication: PRODUCT USED FOR UNKNOWN INDICATION
     Route: 048
     Dates: start: 20140219, end: 20140226

REACTIONS (3)
  - Constipation [Unknown]
  - Pruritus [Unknown]
  - Rash [Unknown]
